FAERS Safety Report 7707515-9 (Version None)
Quarter: 2011Q3

REPORT INFORMATION
  Report Type: 
  Country: None (occurrence: None)
  Receive Date: 20110824
  Receipt Date: 20110819
  Transmission Date: 20111222
  Serious: Yes (Hospitalization, Other)
  Sender: FDA-Public Use
  Company Number: BR-BAYER-201020724LA

PATIENT
  Age: 44 Year
  Sex: Female

DRUGS (20)
  1. ASPIRIN [Concomitant]
     Indication: HYPERTENSION
     Route: 048
  2. SERTRALINE HYDROCHLORIDE [Concomitant]
     Indication: NERVOUS SYSTEM DISORDER
     Dosage: 2 DF, QD
     Route: 048
     Dates: start: 20110101
  3. ENALAPRIL MALEATE [Concomitant]
     Indication: HYPERTENSION
     Route: 048
     Dates: start: 20100901
  4. SIMAVASTATIN [Concomitant]
     Route: 048
     Dates: start: 20050101
  5. TIMOLOL MALEATE [Concomitant]
     Indication: GLAUCOMA
     Dosage: UNK
     Route: 047
  6. BETASERON [Suspect]
     Indication: MULTIPLE SCLEROSIS
     Dosage: BETAJECT
     Route: 058
     Dates: start: 19960901
  7. HYGROTON [Concomitant]
     Indication: HYPERTENSION
     Route: 048
  8. LISADOR [Concomitant]
     Indication: PAIN
     Route: 048
  9. PARACETAMOL [Concomitant]
     Indication: PAIN
     Route: 048
  10. DIAZEPAN [Concomitant]
     Indication: INSOMNIA RELATED TO ANOTHER MENTAL CONDITION
     Dosage: UNK
     Dates: start: 20110301
  11. LISADOR [Concomitant]
  12. ACETAMINOPHEN [Concomitant]
     Indication: PAIN
     Dosage: UNK UNK, PRN
  13. PARACETAMOL [Concomitant]
  14. OMEPRAZOLE [Concomitant]
     Indication: GASTROINTESTINAL DISORDER
     Dosage: 2 DF, QD
     Route: 048
  15. DIAMICRON [Concomitant]
     Indication: DIABETES MELLITUS
     Dosage: 1 DF, BID
     Route: 048
     Dates: start: 20050101
  16. DIGESAN [Concomitant]
     Indication: ABDOMINAL DISCOMFORT
     Dosage: UNK UNK, PRN
  17. AMLODIPINE BESYLATE [Concomitant]
     Indication: HYPERTENSION
     Dosage: 1 DF, QD
     Route: 048
     Dates: start: 20100901
  18. CAPTOPRIL [Concomitant]
     Indication: HYPERTENSION
     Route: 048
     Dates: start: 20050101
  19. ATENOLOL [Concomitant]
     Indication: HYPERTENSION
     Route: 048
     Dates: start: 20100501
  20. TEGRETOL [Concomitant]
     Indication: NERVOUS SYSTEM DISORDER
     Dosage: 1000 MG, QD
     Route: 048
     Dates: end: 20110601

REACTIONS (30)
  - THYROID CYST [None]
  - PLATELET COUNT DECREASED [None]
  - LEUKOPENIA [None]
  - SKIN REACTION [None]
  - ARRHYTHMIA [None]
  - HEPATIC STEATOSIS [None]
  - DIABETES MELLITUS [None]
  - DYSPHONIA [None]
  - CARDIAC DISORDER [None]
  - THYROID NEOPLASM [None]
  - DYSPNOEA [None]
  - DIZZINESS [None]
  - PAIN [None]
  - HYPERTENSION [None]
  - NAUSEA [None]
  - CHILLS [None]
  - SOMNOLENCE [None]
  - CHEST DISCOMFORT [None]
  - INJECTION SITE ERYTHEMA [None]
  - INSOMNIA [None]
  - INFLAMMATION [None]
  - HYPERSENSITIVITY [None]
  - BURNING SENSATION [None]
  - BLOOD PRESSURE ABNORMAL [None]
  - ARTERIOSCLEROSIS [None]
  - INJECTION SITE PAIN [None]
  - PAIN IN EXTREMITY [None]
  - FATIGUE [None]
  - BLISTER [None]
  - INJECTION SITE RASH [None]
